FAERS Safety Report 9017300 (Version 1)
Quarter: 2013Q1

REPORT INFORMATION
  Report Type: Spontaneous
  Country: US (occurrence: US)
  Receive Date: 20130117
  Receipt Date: 20130117
  Transmission Date: 20140127
  Serious: No
  Sender: FDA-Public Use
  Company Number: US-PFIZER INC-2013016438

PATIENT
  Sex: Female

DRUGS (2)
  1. PREMARIN VAGINAL CREAM [Suspect]
     Indication: URINARY TRACT DISORDER
     Dosage: UNK
     Route: 067
     Dates: start: 20130112
  2. PREMARIN VAGINAL CREAM [Suspect]
     Indication: VAGINAL DISORDER

REACTIONS (2)
  - Burning sensation [Unknown]
  - Drug ineffective [Unknown]
